FAERS Safety Report 4312809-3 (Version None)
Quarter: 2004Q1

REPORT INFORMATION
  Report Type: 
  Country: None (occurrence: None)
  Receive Date: 20040304
  Receipt Date: 20040220
  Transmission Date: 20041129
  Serious: Yes (Hospitalization)
  Sender: FDA-Public Use
  Company Number: RS004087-F

PATIENT
  Age: 47 Year
  Sex: Female
  Weight: 77 kg

DRUGS (10)
  1. PARIET (RABEPROAZOLE) (RABEPRAZOLE SODIUM) [Suspect]
     Indication: GASTRIC DISORDER
     Dosage: ORAL
     Route: 048
     Dates: start: 20030101, end: 20030101
  2. PROPOFAN (PROPOFAN) [Suspect]
     Dosage: ORAL
     Route: 048
     Dates: start: 20030101, end: 20030101
  3. PROZAC [Suspect]
     Dosage: ORAL
     Route: 048
     Dates: start: 20030101, end: 20030101
  4. PIROXICAM [Suspect]
     Dosage: ORAL
     Route: 048
  5. ADVIL [Suspect]
     Dates: start: 20030319, end: 20030101
  6. NEXEN (NIMESULIDE) [Concomitant]
  7. FURADANTIN [Concomitant]
  8. CEFUROXIME AXETIL [Concomitant]
  9. ACETAMINOPHEN [Concomitant]
  10. VIRLIX (CETERIZINE HYDROCHLORIDE) [Concomitant]

REACTIONS (15)
  - CHOLESTASIS [None]
  - CORNEAL ULCER [None]
  - CULTURE URINE POSITIVE [None]
  - CYTOLYTIC HEPATITIS [None]
  - ESCHERICHIA INFECTION [None]
  - HEPATITIS CHOLESTATIC [None]
  - HYPOKALAEMIA [None]
  - HYPONATRAEMIA [None]
  - INFLAMMATION [None]
  - LYMPHOPENIA [None]
  - PRURITUS [None]
  - SKIN NECROSIS [None]
  - STEVENS-JOHNSON SYNDROME [None]
  - SYSTEMIC LUPUS ERYTHEMATOSUS [None]
  - TOXIC SKIN ERUPTION [None]
